FAERS Safety Report 5593947-4 (Version None)
Quarter: 2008Q1

REPORT INFORMATION
  Report Type: 
  Country: None (occurrence: None)
  Receive Date: 20080114
  Receipt Date: 20080109
  Transmission Date: 20080703
  Serious: Yes (Life-Threatening)
  Sender: FDA-Public Use
  Company Number: 2008-00068

PATIENT
  Age: 55 Year
  Sex: Female
  Weight: 58 kg

DRUGS (6)
  1. VELCADE [Suspect]
     Indication: MULTIPLE MYELOMA
  2. DOXORUBICIN HCL [Suspect]
     Indication: MULTIPLE MYELOMA
  3. DEXAMETHASONE TAB [Suspect]
     Indication: MULTIPLE MYELOMA
  4. MELPHALAN(MELPHALAN) VIAL [Suspect]
     Indication: MULTIPLE MYELOMA
     Dosage: 160.00 MG, INTRAVENOUS
     Route: 042
     Dates: start: 20071224, end: 20071225
  5. PENICILLIN [Concomitant]
  6. DIFLUCAN [Concomitant]

REACTIONS (4)
  - INFLUENZA [None]
  - RESPIRATORY FAILURE [None]
  - RESPIRATORY SYNCYTIAL VIRUS INFECTION [None]
  - SEPSIS [None]
